FAERS Safety Report 11186150 (Version 2)
Quarter: 2015Q4

REPORT INFORMATION
  Report Type: Spontaneous
  Country: IE (occurrence: IE)
  Receive Date: 20150612
  Receipt Date: 20151124
  Transmission Date: 20160304
  Serious: Yes (Hospitalization, Other)
  Sender: FDA-Public Use
  Company Number: IE-009507513-1506IRL006808

PATIENT
  Age: 63 Year
  Sex: Male

DRUGS (1)
  1. JANUMET [Suspect]
     Active Substance: METFORMIN HYDROCHLORIDE\SITAGLIPTIN PHOSPHATE
     Indication: TYPE 2 DIABETES MELLITUS
     Dosage: 1 DF, BID
     Route: 048
     Dates: start: 20120321, end: 20150610

REACTIONS (3)
  - Oesophageal carcinoma [Recovering/Resolving]
  - Dysphagia [Unknown]
  - Product difficult to swallow [Unknown]

NARRATIVE: CASE EVENT DATE: 2015
